FAERS Safety Report 11174623 (Version 1)
Quarter: 2015Q2

REPORT INFORMATION
  Report Type: Spontaneous
  Country: GB (occurrence: None)
  Receive Date: 20150605
  Receipt Date: 20150605
  Transmission Date: 20150821
  Serious: Yes (Hospitalization)
  Sender: FDA-Public Use
  Company Number: GB-2015-2323

PATIENT
  Age: 62 Year
  Sex: Female

DRUGS (8)
  1. CISPLATIN (CISPLATIN) [Suspect]
     Active Substance: CISPLATIN
     Indication: NON-SMALL CELL LUNG CANCER
     Route: 042
  2. CO-AMOXICLAV (AMOXICILLIN, CLAVULANATE POTASSIUM) [Concomitant]
  3. FERROUS SULFATE [Concomitant]
     Active Substance: FERROUS SULFATE\FERROUS SULFATE, DRIED
  4. LEVOTHYROXINE (LEVOTHYROXINE SODIUM) [Concomitant]
  5. CYCLIZINE (CYCLIZINE) [Concomitant]
  6. LISINOPRIL (LISINOPRIL DIHYDRATE) (UNKNOWN [Concomitant]
     Active Substance: LISINOPRIL
  7. VINORELBINE [Suspect]
     Active Substance: VINORELBINE\VINORELBINE TARTRATE
     Indication: NON-SMALL CELL LUNG CANCER
     Route: 042
  8. CLARITHROMYCIN (CLARITHROMYCIN) [Concomitant]
     Active Substance: CLARITHROMYCIN

REACTIONS (2)
  - Pyrexia [None]
  - Acute kidney injury [None]

NARRATIVE: CASE EVENT DATE: 20150407
